FAERS Safety Report 13448198 (Version 3)
Quarter: 2018Q2

REPORT INFORMATION
  Report Type: Report from Study
  Country: None (occurrence: CH)
  Receive Date: 20170417
  Receipt Date: 20180419
  Transmission Date: 20180711
  Serious: Yes (Hospitalization)
  Sender: FDA-Public Use
  Company Number: CH-ABBVIE-17K-151-1943163-00

PATIENT
  Sex: Male
  Weight: 51 kg

DRUGS (3)
  1. SINEMET [Concomitant]
     Active Substance: CARBIDOPA\LEVODOPA
     Indication: PRODUCT USED FOR UNKNOWN INDICATION
  2. DUODOPA [Suspect]
     Active Substance: CARBIDOPA\LEVODOPA
     Indication: PARKINSON^S DISEASE
     Dosage: MD: 6,0ML, CR: 2.3ML/H, ED: 1,0ML, 16H THERAPY
     Route: 050
     Dates: start: 20150302
  3. MADOPAR [Concomitant]
     Active Substance: BENSERAZIDE HYDROCHLORIDE\LEVODOPA
     Indication: PRODUCT USED FOR UNKNOWN INDICATION

REACTIONS (3)
  - Fatigue [Unknown]
  - Decreased appetite [Unknown]
  - Weight decreased [Recovered/Resolved]

NARRATIVE: CASE EVENT DATE: 2016
